FAERS Safety Report 8562852-3 (Version None)
Quarter: 2012Q3

REPORT INFORMATION
  Report Type: 
  Country: None (occurrence: None)
  Receive Date: 20120802
  Receipt Date: 20120720
  Transmission Date: 20120928
  Serious: No
  Sender: FDA-Public Use
  Company Number: US-AMGEN-USASP2012045380

PATIENT
  Age: 67 Year
  Sex: Female

DRUGS (1)
  1. ENBREL [Suspect]
     Indication: RHEUMATOID ARTHRITIS
     Dosage: 25 MG, 2 TIMES/WK
     Dates: start: 20020121

REACTIONS (8)
  - UPPER-AIRWAY COUGH SYNDROME [None]
  - BALANCE DISORDER [None]
  - NASAL DISCHARGE DISCOLOURATION [None]
  - ACTIVITIES OF DAILY LIVING IMPAIRED [None]
  - RHEUMATOID ARTHRITIS [None]
  - MUSCULOSKELETAL PAIN [None]
  - DIZZINESS [None]
  - OTORRHOEA [None]
